FAERS Safety Report 6546300-0 (Version None)
Quarter: 2010Q1

REPORT INFORMATION
  Report Type: 
  Country: None (occurrence: None)
  Receive Date: 20100122
  Receipt Date: 20100115
  Transmission Date: 20100710
  Serious: Yes (Other)
  Sender: FDA-Public Use
  Company Number: US-ROCHE-671581

PATIENT
  Sex: Male

DRUGS (4)
  1. PEGASYS [Suspect]
     Indication: HEPATITIS C
     Dosage: FORM: PRE- FILLED SYRINGE
     Route: 065
     Dates: start: 20091127
  2. RIBAVIRIN [Suspect]
     Indication: HEPATITIS C
     Dosage: DIVIDED DOSES
     Route: 048
     Dates: start: 20091127
  3. RIBAVIRIN [Suspect]
     Dosage: DIVIDED DOSE
     Route: 048
  4. DEPAKOTE [Concomitant]
     Indication: ANGER

REACTIONS (5)
  - BRONCHITIS [None]
  - CHILLS [None]
  - EMPHYSEMA [None]
  - PAIN [None]
  - PYREXIA [None]
